FAERS Safety Report 8820162 (Version 2)
Quarter: 2012Q4

REPORT INFORMATION
  Report Type: 
  Country: US (occurrence: US)
  Receive Date: 20121001
  Receipt Date: 20121019
  Transmission Date: 20130627
  Serious: No
  Sender: FDA-Public Use
  Company Number: US-PFIZER INC-2012238837

PATIENT
  Age: 69 Year

DRUGS (2)
  1. DETROL LA [Suspect]
     Indication: HYPERTONIC BLADDER
     Dosage: UNK
  2. VESICARE [Suspect]
     Indication: HYPERTONIC BLADDER
     Dosage: UNK

REACTIONS (1)
  - Drug ineffective [Unknown]
